FAERS Safety Report 25462457 (Version 6)
Quarter: 2025Q3

REPORT INFORMATION
  Report Type: Spontaneous
  Country: EU (occurrence: EU)
  Receive Date: 20250620
  Receipt Date: 20250819
  Transmission Date: 20251021
  Serious: Yes (Other)
  Sender: BRISTOL-MYERS SQUIBB COMPANY
  Company Number: EU-SUN PHARMACEUTICAL INDUSTRIES LTD-2025R1-511610

PATIENT
  Age: 39 Year
  Sex: Male

DRUGS (2)
  1. APIXABAN [Suspect]
     Active Substance: APIXABAN
     Indication: Anticoagulant therapy
     Route: 048
  2. APIXABAN [Suspect]
     Active Substance: APIXABAN
     Indication: Arterial thrombosis

REACTIONS (1)
  - Splenic infarction [Unknown]
